FAERS Safety Report 24986680 (Version 1)
Quarter: 2025Q1

REPORT INFORMATION
  Report Type: Spontaneous
  Country: US (occurrence: US)
  Receive Date: 20250219
  Receipt Date: 20250219
  Transmission Date: 20250408
  Serious: No
  Sender: BRISTOL-MYERS SQUIBB COMPANY
  Company Number: US-BRISTOL-MYERS SQUIBB COMPANY-2025-021439

PATIENT
  Age: 66 Year
  Sex: Female

DRUGS (1)
  1. LENALIDOMIDE [Suspect]
     Active Substance: LENALIDOMIDE
     Indication: Plasma cell myeloma
     Dosage: TAKE 1 CAPSULE BY MOUTH EVERY DAY FOR 21 DAYS FOLLOWED BY
     Route: 048
     Dates: start: 202501

REACTIONS (7)
  - Back pain [Unknown]
  - Muscle spasms [Unknown]
  - Constipation [Unknown]
  - Sinusitis [Unknown]
  - Vision blurred [Unknown]
  - Product dose omission issue [Unknown]
  - Cough [Unknown]
